FAERS Safety Report 8982878 (Version 1)
Quarter: 2012Q4

REPORT INFORMATION
  Report Type: 
  Country: DE (occurrence: DE)
  Receive Date: 20121224
  Receipt Date: 20121224
  Transmission Date: 20130627
  Serious: Yes (Death, Hospitalization)
  Sender: FDA-Public Use
  Company Number: DE-PFIZER INC-2012322618

PATIENT
  Sex: Female
  Weight: 59 kg

DRUGS (1)
  1. TEMSIROLIMUS [Suspect]
     Dosage: 25 mg, daily
     Route: 042
     Dates: start: 20120706, end: 20121105

REACTIONS (1)
  - Bronchitis [Fatal]
